FAERS Safety Report 24752611 (Version 1)
Quarter: 2024Q4

REPORT INFORMATION
  Report Type: Spontaneous
  Country: US (occurrence: US)
  Receive Date: 20241219
  Receipt Date: 20241219
  Transmission Date: 20250114
  Serious: No
  Sender: ROCHE
  Company Number: US-ROCHE-10000155797

PATIENT
  Sex: Female

DRUGS (1)
  1. XOLAIR [Suspect]
     Active Substance: OMALIZUMAB
     Indication: Idiopathic urticaria
     Dosage: STRENGTH 300 MG/2ML
     Route: 058
     Dates: start: 202403

REACTIONS (5)
  - Off label use [Unknown]
  - Emotional distress [Unknown]
  - Urticaria [Unknown]
  - Pruritus [Unknown]
  - Feeling abnormal [Unknown]
